FAERS Safety Report 8474904-7 (Version None)
Quarter: 2012Q2

REPORT INFORMATION
  Report Type: 
  Country: None (occurrence: None)
  Receive Date: 20120628
  Receipt Date: 20120622
  Transmission Date: 20120825
  Serious: No
  Sender: FDA-Public Use
  Company Number: US-BAYER-2011-008473

PATIENT
  Age: 43 Year
  Sex: Female
  Weight: 58.05 kg

DRUGS (3)
  1. MIRENA [Suspect]
     Indication: CONTRACEPTION
     Dosage: 20 ?G/D, CONT
     Route: 015
  2. FOLIC ACID [Concomitant]
  3. LEXAPRO [Concomitant]

REACTIONS (4)
  - NAUSEA [None]
  - DIZZINESS [None]
  - FATIGUE [None]
  - ERUCTATION [None]
